FAERS Safety Report 26124019 (Version 1)
Quarter: 2025Q4

REPORT INFORMATION
  Report Type: Spontaneous
  Country: EU (occurrence: EU)
  Receive Date: 20251205
  Receipt Date: 20251205
  Transmission Date: 20260118
  Serious: Yes (Disabling)
  Sender: TEVA
  Company Number: EU-DCGMA-25206151

PATIENT
  Sex: Male

DRUGS (1)
  1. TRAMADOL [Suspect]
     Active Substance: TRAMADOL
     Indication: Product used for unknown indication
     Dosage: 3X4 HUB; DROPS (UNSPECIFIED)
     Route: 065

REACTIONS (2)
  - Pulpless tooth [Unknown]
  - Enamel anomaly [Unknown]
